FAERS Safety Report 14995260 (Version 1)
Quarter: 2018Q2

REPORT INFORMATION
  Report Type: Spontaneous
  Country: US (occurrence: US)
  Receive Date: 20180611
  Receipt Date: 20180611
  Transmission Date: 20180711
  Serious: Yes (Other)
  Sender: FDA-Public Use
  Company Number: US-SA-2017SA261426

PATIENT
  Age: 45 Year
  Sex: Female
  Weight: 113.39 kg

DRUGS (4)
  1. ADRIAMYCIN [DOXORUBICIN] [Concomitant]
  2. TAXOTERE [Suspect]
     Active Substance: DOCETAXEL
     Indication: BREAST CANCER
     Dosage: 150 MG, QW
     Route: 051
     Dates: start: 201001, end: 201001
  3. TAXOTERE [Suspect]
     Active Substance: DOCETAXEL
     Dosage: 150 MG, QCY
     Route: 051
     Dates: start: 201004, end: 201004
  4. NEOSAR [Concomitant]
     Active Substance: CYCLOPHOSPHAMIDE

REACTIONS (1)
  - Alopecia [Not Recovered/Not Resolved]

NARRATIVE: CASE EVENT DATE: 201010
